FAERS Safety Report 10061126 (Version 1)
Quarter: 2014Q2

REPORT INFORMATION
  Report Type: Report from Study
  Country: TR (occurrence: TR)
  Receive Date: 20140406
  Receipt Date: 20140406
  Transmission Date: 20141212
  Serious: Yes (Other)
  Sender: FDA-Public Use
  Company Number: TR-US-EMD SERONO, INC.-7279757

PATIENT
  Sex: Male
  Weight: 83 kg

DRUGS (2)
  1. REBIF [Suspect]
     Indication: MULTIPLE SCLEROSIS
     Dates: end: 201401
  2. REBIF [Suspect]

REACTIONS (2)
  - Diabetes mellitus [Unknown]
  - Alanine aminotransferase increased [Recovering/Resolving]
